FAERS Safety Report 23444980 (Version 6)
Quarter: 2025Q2

REPORT INFORMATION
  Report Type: Report from Study
  Country: JP (occurrence: JP)
  Receive Date: 20240125
  Receipt Date: 20250613
  Transmission Date: 20250717
  Serious: Yes (Hospitalization, Other)
  Sender: TAKEDA
  Company Number: JP-TAKEDA-2024TJP000857

PATIENT
  Age: 19 Year
  Sex: Female
  Weight: 55.3 kg

DRUGS (4)
  1. LANADELUMAB [Suspect]
     Active Substance: LANADELUMAB
     Indication: Hereditary angioedema with normal C1 esterase inhibitor
     Dosage: 300 MILLIGRAM, Q2WEEKS
     Dates: start: 20231121, end: 20240115
  2. LANADELUMAB [Suspect]
     Active Substance: LANADELUMAB
     Dates: start: 20240303, end: 20240303
  3. LANADELUMAB [Suspect]
     Active Substance: LANADELUMAB
     Dates: start: 20240401, end: 20240401
  4. BERINERT P [Concomitant]
     Active Substance: HUMAN C1-ESTERASE INHIBITOR
     Dates: start: 20231125, end: 20231125

REACTIONS (10)
  - Dizziness [Recovered/Resolved]
  - Abdominal pain [Recovering/Resolving]
  - Generalised oedema [Recovering/Resolving]
  - Hereditary angioedema [Recovered/Resolved]
  - Dizziness [Recovered/Resolved]
  - Dizziness [Recovered/Resolved]
  - Dizziness [Recovering/Resolving]
  - Dizziness [Recovered/Resolved]
  - Gastritis [Recovering/Resolving]
  - Dysmenorrhoea [Recovering/Resolving]

NARRATIVE: CASE EVENT DATE: 20231126
